FAERS Safety Report 9215734 (Version 1)
Quarter: 2013Q2

REPORT INFORMATION
  Report Type: Spontaneous
  Country: US (occurrence: None)
  Receive Date: 20130405
  Receipt Date: 20130405
  Transmission Date: 20140414
  Serious: Yes (Death, Other)
  Sender: FDA-Public Use
  Company Number: SYM-2013-02248

PATIENT
  Age: 63 Year
  Sex: Male

DRUGS (4)
  1. FLUOROURACIL [Suspect]
     Indication: COLORECTAL CANCER STAGE III
  2. PACLITAXEL [Suspect]
     Indication: NON-SMALL CELL LUNG CANCER STAGE IIIB
  3. CARBOPLATIN (CARBOPLATIN) (CARBOPLATIN) [Concomitant]
  4. BEVACIZUMAB [Concomitant]

REACTIONS (5)
  - Colorectal cancer stage III [None]
  - Arteriospasm coronary [None]
  - Lung carcinoma cell type unspecified recurrent [None]
  - Metastases to central nervous system [None]
  - Malignant neoplasm progression [None]
